FAERS Safety Report 20127570 (Version 1)
Quarter: 2021Q4

REPORT INFORMATION
  Report Type: Spontaneous
  Country: FI (occurrence: FI)
  Receive Date: 20211129
  Receipt Date: 20211129
  Transmission Date: 20220303
  Serious: Yes (Other)
  Sender: FDA-Public Use
  Company Number: FI-PFIZER INC-202100917636

PATIENT
  Age: 2 Year

DRUGS (7)
  1. CIPROFLOXACIN [Suspect]
     Active Substance: CIPROFLOXACIN
     Indication: Pharyngitis
     Dosage: 30 MG/KG, 1X/DAY
     Route: 042
  2. CIPROFLOXACIN [Suspect]
     Active Substance: CIPROFLOXACIN
     Indication: Pyrexia
  3. MEROPENEM [Suspect]
     Active Substance: MEROPENEM
     Indication: Pharyngitis
     Dosage: 120 MG/KG, 1X/DAY
     Route: 042
  4. MEROPENEM [Suspect]
     Active Substance: MEROPENEM
     Indication: Pyrexia
  5. TOBRAMYCIN [Suspect]
     Active Substance: TOBRAMYCIN
     Indication: Antibiotic therapy
     Dosage: 5 MG/KG, 1X/DAY
     Route: 042
  6. PIPERACILLIN AND TAZOBACTAM [Suspect]
     Active Substance: PIPERACILLIN SODIUM\TAZOBACTAM SODIUM
     Indication: Pharyngitis
     Dosage: 300 MG/KG, 1X/DAY
     Route: 042
  7. TOBRAMYCIN [Concomitant]
     Active Substance: TOBRAMYCIN
     Dosage: 5 MG, 1X/DAY
     Route: 037

REACTIONS (1)
  - Drug ineffective [Unknown]
